FAERS Safety Report 4455628-X (Version None)
Quarter: 2004Q3

REPORT INFORMATION
  Report Type: 
  Country: None (occurrence: None)
  Receive Date: 20040917
  Receipt Date: 20040826
  Transmission Date: 20050211
  Serious: Yes (Other)
  Sender: FDA-Public Use
  Company Number: USA040876588

PATIENT
  Age: 13 Year
  Sex: Male
  Weight: 49 kg

DRUGS (1)
  1. HUMATROPE [Suspect]
     Indication: GROWTH HORMONE DEFICIENCY
     Dosage: 2.4 MG/6 WEEK
     Dates: start: 19960101, end: 20040816

REACTIONS (5)
  - DIZZINESS [None]
  - HEADACHE [None]
  - LEUKOENCEPHALOMYELITIS [None]
  - NEUROLOGICAL SYMPTOM [None]
  - VIITH NERVE PARALYSIS [None]
